FAERS Safety Report 4388474-6 (Version None)
Quarter: 2004Q2

REPORT INFORMATION
  Report Type: 
  Country: None (occurrence: None)
  Receive Date: 20040625
  Receipt Date: 20040616
  Transmission Date: 20050107
  Serious: Yes (Other)
  Sender: FDA-Public Use
  Company Number: US-JNJFOC-20040401350

PATIENT
  Age: 73 Year
  Sex: Male
  Weight: 90.7194 kg

DRUGS (5)
  1. DURAGESIC [Suspect]
     Indication: PAIN
     Dosage: SEE IMAGE
     Route: 062
     Dates: start: 20040201, end: 20040405
  2. OXYCODONE HCL [Suspect]
     Indication: PAIN
     Dosage: 1 IN 6 HOUR, ORAL
     Route: 048
     Dates: start: 20040201, end: 20040401
  3. CELEBREX [Concomitant]
  4. NEXIUM [Concomitant]
  5. AVALIDE(KARVEA HCT) [Concomitant]

REACTIONS (8)
  - AGITATION [None]
  - ANOREXIA [None]
  - APPLICATION SITE REACTION [None]
  - BLOOD PRESSURE INCREASED [None]
  - DYSPNOEA [None]
  - INSOMNIA [None]
  - PHARMACEUTICAL PRODUCT COMPLAINT [None]
  - RASH SCALY [None]
